FAERS Safety Report 19943575 (Version 1)
Quarter: 2021Q4

REPORT INFORMATION
  Report Type: Spontaneous
  Country: JP (occurrence: JP)
  Receive Date: 20211011
  Receipt Date: 20211011
  Transmission Date: 20220303
  Serious: Yes (Death, Other)
  Sender: FDA-Public Use
  Company Number: 2021A765678

PATIENT
  Age: 71 Year
  Sex: Male
  Weight: 49 kg

DRUGS (13)
  1. IMFINZI [Suspect]
     Active Substance: DURVALUMAB
     Indication: Small cell lung cancer
     Route: 042
     Dates: start: 20210622, end: 20210622
  2. CARBOPLATIN [Suspect]
     Active Substance: CARBOPLATIN
     Indication: Small cell lung cancer
     Route: 041
     Dates: start: 20210622, end: 20210622
  3. ETOPOSIDE [Suspect]
     Active Substance: ETOPOSIDE
     Indication: Small cell lung cancer
     Dosage: 120 MG, ON DAY 1, 2 AND 3 OF EACH CYCLE.
     Route: 041
     Dates: start: 20210622, end: 20210623
  4. AMLODIPINE [Concomitant]
     Active Substance: AMLODIPINE BESYLATE
     Route: 048
     Dates: start: 20210611, end: 20210624
  5. CARBOCYSTEINE [Concomitant]
     Active Substance: CARBOCYSTEINE
     Route: 048
     Dates: start: 20210611, end: 20210624
  6. AMBROXOL HYDROCHLORIDE [Concomitant]
     Active Substance: AMBROXOL HYDROCHLORIDE
     Route: 048
     Dates: start: 20210611, end: 20210624
  7. GRANISETRON [Concomitant]
     Active Substance: GRANISETRON
     Dosage: DOSE UNKNOWN
     Route: 065
     Dates: start: 20210622, end: 20210623
  8. DEXAMETHASONE SODIUM PHOSPHATE [Concomitant]
     Active Substance: DEXAMETHASONE SODIUM PHOSPHATE
     Dosage: DOSE UNKNOWN
     Route: 065
     Dates: start: 20210622, end: 20210623
  9. APREPITANT [Concomitant]
     Active Substance: APREPITANT
     Dosage: DOSE UNKNOWN
     Route: 048
     Dates: start: 20210622, end: 20210623
  10. SOLDEM 3A [Concomitant]
     Active Substance: CARBOHYDRATES\POTASSIUM CHLORIDE\SODIUM CHLORIDE\SODIUM LACTATE
     Dosage: DOSE UNKNOWN
     Route: 065
     Dates: start: 20210622, end: 20210622
  11. DEXTROSE [Concomitant]
     Active Substance: DEXTROSE
     Dosage: DOSE UNKNOWN
     Route: 065
     Dates: start: 20210622, end: 20210623
  12. SODIUM CHLORIDE [Concomitant]
     Active Substance: SODIUM CHLORIDE
     Dosage: DOSE UNKNOWN
     Route: 065
     Dates: start: 20210622, end: 20210622
  13. ISOTONIC SODIUM CHLORIDE SOLUTION [Concomitant]
     Active Substance: SODIUM CHLORIDE
     Dosage: DOSE UNKNOWN
     Route: 065
     Dates: start: 20210622, end: 20210623

REACTIONS (2)
  - Cardiac failure acute [Fatal]
  - Tumour obstruction [Unknown]

NARRATIVE: CASE EVENT DATE: 20210623
